FAERS Safety Report 7932029-0 (Version None)
Quarter: 2011Q4

REPORT INFORMATION
  Report Type: 
  Country: None (occurrence: None)
  Receive Date: 20111121
  Receipt Date: 20110822
  Transmission Date: 20120403
  Serious: No
  Sender: FDA-Public Use
  Company Number: US-BAYER-2011-083375

PATIENT
  Sex: Female

DRUGS (3)
  1. DICLOFENAC SODIUM [Concomitant]
     Indication: PAIN
     Dosage: UNK UNK, BID
  2. CYMBALTA [Concomitant]
  3. ALEVE (CAPLET) [Suspect]
     Dosage: 2 DF, BID

REACTIONS (1)
  - NO ADVERSE EVENT [None]
